FAERS Safety Report 9179224 (Version 1)
Quarter: 2013Q1

REPORT INFORMATION
  Report Type: Report from Study
  Country: HU (occurrence: HU)
  Receive Date: 20130321
  Receipt Date: 20130321
  Transmission Date: 20140127
  Serious: Yes (Hospitalization)
  Sender: FDA-Public Use
  Company Number: HU-GLAXOSMITHKLINE-B0867143A

PATIENT
  Sex: Female

DRUGS (15)
  1. SERETIDE DISKUS [Suspect]
     Indication: ASTHMA
     Dosage: 500MCG TWICE PER DAY
     Route: 055
  2. SERETIDE DISKUS [Suspect]
     Indication: ASTHMA
     Dosage: 250MCG PER DAY
     Route: 055
  3. ISOPTIN [Concomitant]
     Dosage: 120MG PER DAY
     Route: 065
     Dates: start: 2012
  4. NOOTROPIL [Concomitant]
     Dosage: 1200MG PER DAY
     Route: 065
     Dates: start: 2011
  5. BETAHISTINE [Concomitant]
     Dosage: 24MG PER DAY
     Route: 065
  6. ATORIS [Concomitant]
     Dosage: 10MG PER DAY
     Route: 065
  7. INDOMETHACIN [Concomitant]
     Route: 065
     Dates: start: 2012
  8. CIPRALEX [Concomitant]
     Indication: PANIC DISORDER
     Route: 065
  9. FRONTIN [Concomitant]
     Dosage: .25MG PER DAY
     Route: 065
  10. EPOLAR TRIO [Concomitant]
     Indication: OSTEOPOROSIS
     Dosage: 70MG WEEKLY
     Route: 065
  11. VENTOLIN [Concomitant]
     Route: 065
  12. NASONEX [Concomitant]
     Indication: HYPERSENSITIVITY
     Route: 065
  13. MERAMYL [Concomitant]
     Route: 065
     Dates: start: 2011
  14. VITAMIN C [Concomitant]
     Dates: start: 2012
  15. INFLUENZA VACCINE [Concomitant]
     Dates: start: 2012

REACTIONS (3)
  - Dyspnoea [Recovered/Resolved]
  - Influenza [Recovered/Resolved]
  - Nasopharyngitis [Recovered/Resolved]
